FAERS Safety Report 24119285 (Version 2)
Quarter: 2024Q3

REPORT INFORMATION
  Report Type: Spontaneous
  Country: US (occurrence: US)
  Receive Date: 20240722
  Receipt Date: 20240724
  Transmission Date: 20241017
  Serious: Yes (Other)
  Sender: TEVA
  Company Number: US-TEVA-VS-3221600

PATIENT
  Sex: Female

DRUGS (7)
  1. COPAXONE [Suspect]
     Active Substance: GLATIRAMER ACETATE
     Indication: Product used for unknown indication
     Route: 065
  2. VITAMIN D3 [Concomitant]
     Active Substance: CHOLECALCIFEROL
  3. IRON [Concomitant]
     Active Substance: IRON
  4. VITAMIN B [Concomitant]
     Active Substance: VITAMIN B
  5. VITAMINS [Concomitant]
     Active Substance: VITAMINS
  6. METFORMIN [Concomitant]
     Active Substance: METFORMIN HYDROCHLORIDE
  7. ARMODAFINIL [Concomitant]
     Active Substance: ARMODAFINIL

REACTIONS (1)
  - Multiple sclerosis relapse [Unknown]
